FAERS Safety Report 8590459-0 (Version None)
Quarter: 2012Q3

REPORT INFORMATION
  Report Type: 
  Country: None (occurrence: None)
  Receive Date: 20120813
  Receipt Date: 20120807
  Transmission Date: 20120928
  Serious: Yes (Hospitalization)
  Sender: FDA-Public Use
  Company Number: BE-PFIZER INC-2012193296

PATIENT
  Sex: Female
  Weight: 98 kg

DRUGS (6)
  1. LEVOTHYROXINE [Concomitant]
     Indication: BLOOD THYROID STIMULATING HORMONE DECREASED
     Dosage: UNK
     Dates: start: 20021015
  2. FEMOSTON CONTI [Concomitant]
     Indication: HYPOGONADISM FEMALE
  3. GENOTROPIN [Suspect]
     Dosage: 0.6 MG, 7-WK
     Route: 058
     Dates: start: 20041116
  4. FEMOSTON CONTI [Concomitant]
     Indication: BLOOD LUTEINISING HORMONE DECREASED
     Dosage: UNK
     Dates: start: 20021015
  5. LEVOTHYROXINE [Concomitant]
     Indication: PRIMARY HYPOTHYROIDISM
  6. FEMOSTON CONTI [Concomitant]
     Indication: BLOOD FOLLICLE STIMULATING HORMONE DECREASED

REACTIONS (1)
  - SURGERY [None]
